FAERS Safety Report 21833466 (Version 2)
Quarter: 2023Q1

REPORT INFORMATION
  Report Type: Report from Study
  Country: US (occurrence: US)
  Receive Date: 20230107
  Receipt Date: 20230203
  Transmission Date: 20230418
  Serious: Yes (Hospitalization)
  Sender: FDA-Public Use
  Company Number: US-UNITED THERAPEUTICS-UNT-2022-032528

PATIENT
  Age: 15 Year
  Sex: Female
  Weight: 42 kg

DRUGS (10)
  1. UNITUXIN [Suspect]
     Active Substance: DINUTUXIMAB
     Indication: Neuroblastoma
     Dosage: 25.2 MG, CYCLICAL (DAY 8-11)
     Route: 041
     Dates: start: 20221113, end: 20221117
  2. UNITUXIN [Suspect]
     Active Substance: DINUTUXIMAB
     Dosage: 25.2 MG, CYCLICAL (DAY 29-32)
     Route: 041
     Dates: start: 20221215, end: 20221219
  3. VORINOSTAT [Suspect]
     Active Substance: VORINOSTAT
     Indication: Neuroblastoma
     Dosage: 260 MG, QD
     Route: 048
     Dates: start: 20221103, end: 20221116
  4. IOBENGUANE I-131 [Suspect]
     Active Substance: IOBENGUANE I-131
     Indication: Neuroblastoma
     Dosage: 892 MCI, ONE TIME DOSE
     Route: 041
     Dates: start: 20221104, end: 20221104
  5. IOBENGUANE I-131 [Suspect]
     Active Substance: IOBENGUANE I-131
     Dosage: UNK
     Route: 041
     Dates: start: 20221104, end: 20221104
  6. IOBENGUANE I-131 [Suspect]
     Active Substance: IOBENGUANE I-131
     Dosage: UNK
     Route: 041
     Dates: start: 20221104, end: 20221104
  7. IOBENGUANE I-131 [Suspect]
     Active Substance: IOBENGUANE I-131
     Dosage: UNK
     Route: 041
     Dates: start: 20221104, end: 20221104
  8. IOBENGUANE I-131 [Suspect]
     Active Substance: IOBENGUANE I-131
     Dosage: UNK
     Route: 041
     Dates: start: 20221104, end: 20221104
  9. SARGRAMOSTIM [Suspect]
     Active Substance: SARGRAMOSTIM
     Indication: Neuroblastoma
     Dosage: 360 ?G, QD
     Route: 058
     Dates: start: 20221113, end: 20221123
  10. SARGRAMOSTIM [Suspect]
     Active Substance: SARGRAMOSTIM
     Dosage: 360 ?G, QD
     Route: 058
     Dates: start: 20221215, end: 20221225

REACTIONS (7)
  - Pyrexia [Recovered/Resolved]
  - Bone pain [Recovered/Resolved]
  - Fatigue [Not Recovered/Not Resolved]
  - Decreased appetite [Recovered/Resolved]
  - Nausea [Recovered/Resolved]
  - Headache [Not Recovered/Not Resolved]
  - Vomiting [Recovered/Resolved]

NARRATIVE: CASE EVENT DATE: 20221227
